FAERS Safety Report 10768240 (Version 2)
Quarter: 2015Q1

REPORT INFORMATION
  Report Type: Spontaneous
  Country: BR (occurrence: BR)
  Receive Date: 20150206
  Receipt Date: 20150310
  Transmission Date: 20150721
  Serious: Yes (Other)
  Sender: FDA-Public Use
  Company Number: BR-ROCHE-1531950

PATIENT
  Age: 68 Year
  Sex: Male
  Weight: 79 kg

DRUGS (1)
  1. ZELBORAF [Suspect]
     Active Substance: VEMURAFENIB
     Indication: METASTASIS
     Dosage: 4 TABLETS IN MORNING AND EVENING EACH
     Route: 048
     Dates: start: 201409

REACTIONS (13)
  - Chills [Unknown]
  - Diarrhoea [Unknown]
  - Skin exfoliation [Unknown]
  - Alopecia [Unknown]
  - Erythema [Unknown]
  - Pain [Unknown]
  - Decreased appetite [Recovering/Resolving]
  - Insomnia [Unknown]
  - Nausea [Unknown]
  - Cerebrovascular accident [Unknown]
  - Skin cancer [Unknown]
  - Weight decreased [Unknown]
  - Pyrexia [Unknown]
